FAERS Safety Report 9643967 (Version 4)
Quarter: 2014Q2

REPORT INFORMATION
  Report Type: Spontaneous
  Country: IE (occurrence: IE)
  Receive Date: 20131024
  Receipt Date: 20140409
  Transmission Date: 20141212
  Serious: Yes (Other)
  Sender: FDA-Public Use
  Company Number: IE-ABBVIE-13P-229-1051110-00

PATIENT
  Sex: Female

DRUGS (9)
  1. HUMIRA [Suspect]
     Indication: CROHN^S DISEASE
     Dosage: TWICE WEEKLY
     Route: 058
     Dates: start: 20120305
  2. HUMIRA [Suspect]
     Dosage: ADVISED TO HOLD HUMIRA FOR 6-8 WEEKS
     Route: 058
  3. FLU VACCINE [Concomitant]
     Indication: PRODUCT USED FOR UNKNOWN INDICATION
  4. BUSCOPAN [Concomitant]
     Indication: PRODUCT USED FOR UNKNOWN INDICATION
  5. STILNOCT [Concomitant]
     Indication: PRODUCT USED FOR UNKNOWN INDICATION
  6. NEXIUM [Concomitant]
     Indication: PRODUCT USED FOR UNKNOWN INDICATION
  7. B12 [Concomitant]
     Indication: PRODUCT USED FOR UNKNOWN INDICATION
  8. LAMOTIL [Concomitant]
     Indication: PRODUCT USED FOR UNKNOWN INDICATION
  9. IRON [Concomitant]
     Indication: PRODUCT USED FOR UNKNOWN INDICATION

REACTIONS (3)
  - Haemochromatosis [Not Recovered/Not Resolved]
  - Hyperhidrosis [Recovered/Resolved]
  - Vaccination complication [Not Recovered/Not Resolved]
